FAERS Safety Report 14333289 (Version 4)
Quarter: 2018Q3

REPORT INFORMATION
  Report Type: Spontaneous
  Country: US (occurrence: US)
  Receive Date: 20171228
  Receipt Date: 20180813
  Transmission Date: 20181010
  Serious: Yes (Other)
  Sender: FDA-Public Use
  Company Number: US-BAYER-2017-244066

PATIENT
  Age: 43 Year
  Sex: Female
  Weight: 141.5 kg

DRUGS (3)
  1. MIRENA [Suspect]
     Active Substance: LEVONORGESTREL
     Indication: UTERINE LEIOMYOMA
  2. MIRENA [Suspect]
     Active Substance: LEVONORGESTREL
     Indication: CONTRACEPTION
     Dosage: 20 MCG/24HR, CONT
     Route: 015
     Dates: start: 20171018, end: 20171115
  3. MIRENA [Suspect]
     Active Substance: LEVONORGESTREL
     Indication: MENORRHAGIA
     Dosage: 20 MCG/24HR, CONT
     Route: 015
     Dates: start: 20180116, end: 20180205

REACTIONS (7)
  - Device expulsion [None]
  - Vaginal haemorrhage [Not Recovered/Not Resolved]
  - Device expulsion [None]
  - Medical device site discomfort [None]
  - Genital haemorrhage [Recovering/Resolving]
  - Post procedural discomfort [None]
  - Abdominal pain lower [None]

NARRATIVE: CASE EVENT DATE: 2017
